FAERS Safety Report 25857080 (Version 1)
Quarter: 2025Q3

REPORT INFORMATION
  Report Type: Spontaneous
  Country: US (occurrence: US)
  Receive Date: 20250929
  Receipt Date: 20250929
  Transmission Date: 20251020
  Serious: No
  Sender: AXSOME THERAPEUTICS
  Company Number: US-AXS-AXS202508-001537

PATIENT
  Age: 67 Year

DRUGS (1)
  1. AUVELITY [Suspect]
     Active Substance: BUPROPION HYDROCHLORIDE\DEXTROMETHORPHAN HYDROBROMIDE
     Indication: Depression
     Route: 048

REACTIONS (4)
  - Skin lesion [Unknown]
  - Headache [Unknown]
  - Pruritus [Unknown]
  - Drug hypersensitivity [Unknown]
